FAERS Safety Report 19092142 (Version 1)
Quarter: 2021Q2

REPORT INFORMATION
  Report Type: Spontaneous
  Country: US (occurrence: US)
  Receive Date: 20210403
  Receipt Date: 20210403
  Transmission Date: 20210717
  Serious: Yes (Other)
  Sender: FDA-Public Use
  Company Number: None

PATIENT
  Age: 16 Year
  Sex: Male
  Weight: 87.2 kg

DRUGS (4)
  1. REMDESIVIR. [Suspect]
     Active Substance: REMDESIVIR
     Indication: COVID-19
     Route: 042
     Dates: start: 20210331, end: 20210403
  2. FAMOTIDINE. [Concomitant]
     Active Substance: FAMOTIDINE
     Dates: start: 20210331
  3. DEXAMETHASONE. [Concomitant]
     Active Substance: DEXAMETHASONE
     Dates: start: 20210331
  4. ENOXAPARIN [Concomitant]
     Active Substance: ENOXAPARIN
     Dates: start: 20210331

REACTIONS (1)
  - Alanine aminotransferase increased [None]

NARRATIVE: CASE EVENT DATE: 20210403
